FAERS Safety Report 4662602-7 (Version None)
Quarter: 2005Q2

REPORT INFORMATION
  Report Type: 
  Country: None (occurrence: None)
  Receive Date: 20050513
  Receipt Date: 20050513
  Transmission Date: 20051028
  Serious: Yes (Hospitalization)
  Sender: FDA-Public Use
  Company Number: None

PATIENT
  Age: 82 Year
  Sex: Male
  Weight: 102.9665 kg

DRUGS (14)
  1. WARFARIN 2.5MG [Suspect]
     Indication: ATRIAL FIBRILLATION
     Dosage: 2.5MG  QHS  ORAL
     Route: 048
     Dates: start: 20050208, end: 20050225
  2. ASPIRIN [Suspect]
     Indication: CEREBROVASCULAR ACCIDENT PROPHYLAXIS
     Dosage: 325MG  QD ORAL
     Route: 048
     Dates: start: 20010906, end: 20050225
  3. ASPIRIN [Suspect]
     Indication: MYOCARDIAL INFARCTION
     Dosage: 325MG  QD ORAL
     Route: 048
     Dates: start: 20010906, end: 20050225
  4. ASPIRIN [Suspect]
     Indication: PROPHYLAXIS
     Dosage: 325MG  QD ORAL
     Route: 048
     Dates: start: 20010906, end: 20050225
  5. ALBUTEROL [Concomitant]
  6. CARVEDILOL [Concomitant]
  7. FELODIPINE [Concomitant]
  8. GATIFLOXACIN [Concomitant]
  9. GUAIFENESIN [Concomitant]
  10. ATROVENT [Concomitant]
  11. LISINOPRIL [Concomitant]
  12. VITAMIN K [Concomitant]
  13. PREDNISONE [Concomitant]
  14. TRAZODONE [Concomitant]

REACTIONS (5)
  - DIARRHOEA [None]
  - DIZZINESS POSTURAL [None]
  - HAEMATOCRIT DECREASED [None]
  - INTERNATIONAL NORMALISED RATIO INCREASED [None]
  - MELAENA [None]
